FAERS Safety Report 10005141 (Version 4)
Quarter: 2015Q2

REPORT INFORMATION
  Report Type: Spontaneous
  Country: US (occurrence: US)
  Receive Date: 20140312
  Receipt Date: 20150527
  Transmission Date: 20150821
  Serious: Yes (Hospitalization)
  Sender: FDA-Public Use
  Company Number: US-009507513-1403USA003431

PATIENT
  Sex: Male
  Weight: 111.57 kg

DRUGS (3)
  1. PROPECIA [Suspect]
     Active Substance: FINASTERIDE
     Dosage: 1 MG, QD
     Route: 048
     Dates: start: 20031111, end: 20031202
  2. PROPECIA [Suspect]
     Active Substance: FINASTERIDE
     Dosage: 1 MG, QD
     Route: 048
     Dates: start: 20040329, end: 200411
  3. PROPECIA [Suspect]
     Active Substance: FINASTERIDE
     Indication: ALOPECIA
     Dosage: 1 MG, QD
     Route: 048
     Dates: start: 20021216, end: 20030618

REACTIONS (31)
  - Alcohol abuse [Unknown]
  - Herpes simplex [Unknown]
  - Hyperlipidaemia [Unknown]
  - Pancreatic disorder [Unknown]
  - Post-traumatic stress disorder [Not Recovered/Not Resolved]
  - Anxiety [Unknown]
  - Diabetes mellitus inadequate control [Unknown]
  - Tachycardia [Unknown]
  - Erectile dysfunction [Unknown]
  - Back injury [Unknown]
  - Romberg test positive [Unknown]
  - Substance abuse [Unknown]
  - Drug ineffective [Unknown]
  - Joint injury [Unknown]
  - Hepatitis [Unknown]
  - Sensory loss [Unknown]
  - Panic reaction [Unknown]
  - Hypertension [Unknown]
  - Osteoarthritis [Unknown]
  - Hepatitis C [Unknown]
  - Loss of libido [Unknown]
  - Back pain [Not Recovered/Not Resolved]
  - Treatment noncompliance [Unknown]
  - Diabetes mellitus [Unknown]
  - Sinusitis [Unknown]
  - Depression [Unknown]
  - Asthenia [Unknown]
  - Sexual dysfunction [Not Recovered/Not Resolved]
  - Headache [Unknown]
  - Hepatic function abnormal [Unknown]
  - Intentional product misuse [Unknown]

NARRATIVE: CASE EVENT DATE: 2007
